FAERS Safety Report 9383146 (Version 1)
Quarter: 2013Q3

REPORT INFORMATION
  Report Type: Spontaneous
  Country: MY (occurrence: MY)
  Receive Date: 20130704
  Receipt Date: 20130704
  Transmission Date: 20140515
  Serious: Yes (Hospitalization)
  Sender: FDA-Public Use
  Company Number: MY-ROCHE-1244406

PATIENT
  Age: 32 Year
  Sex: Male

DRUGS (2)
  1. ROCEPHIN [Suspect]
     Indication: BRAIN ABSCESS
     Dosage: 2GM BD
     Route: 042
     Dates: start: 20130514, end: 20130523
  2. ROCEPHIN [Suspect]
     Route: 042
     Dates: start: 20130601

REACTIONS (2)
  - Rash maculo-papular [Recovered/Resolved]
  - Pruritus generalised [Recovered/Resolved]
